FAERS Safety Report 6637004-4 (Version None)
Quarter: 2010Q1

REPORT INFORMATION
  Report Type: 
  Country: None (occurrence: None)
  Receive Date: 20100316
  Receipt Date: 20100312
  Transmission Date: 20100710
  Serious: Yes (Hospitalization, Other)
  Sender: FDA-Public Use
  Company Number: CN-ROXANE LABORATORIES, INC.-2010-RO-00264RO

PATIENT
  Age: 65 Year
  Sex: Female

DRUGS (5)
  1. ZOLPIDEM [Suspect]
     Indication: INSOMNIA
  2. BISOPROLOL [Suspect]
  3. NATEGLINIDE [Suspect]
  4. EZETIMIBE [Suspect]
     Indication: HYPERLIPIDAEMIA
  5. CANDESARTAN [Suspect]

REACTIONS (8)
  - ANXIETY [None]
  - CONFUSIONAL STATE [None]
  - DIZZINESS [None]
  - MEDICATION ERROR [None]
  - REPETITIVE SPEECH [None]
  - SOMNOLENCE [None]
  - TRANSIENT GLOBAL AMNESIA [None]
  - VISION BLURRED [None]
